FAERS Safety Report 7514230-3 (Version None)
Quarter: 2011Q2

REPORT INFORMATION
  Report Type: 
  Country: None (occurrence: None)
  Receive Date: 20110531
  Receipt Date: 20110530
  Transmission Date: 20111010
  Serious: Yes (Hospitalization)
  Sender: FDA-Public Use
  Company Number: AU-AMGEN-AUSCT2011027705

PATIENT
  Age: 69 Year
  Sex: Male
  Weight: 98 kg

DRUGS (18)
  1. GABAPENTIN [Concomitant]
     Dosage: UNK UNK, UNK
     Route: 048
     Dates: start: 20080115
  2. PANITUMUMAB [Suspect]
     Indication: COLORECTAL CANCER
     Dosage: 588 MG, UNK
     Dates: start: 20101130
  3. PARACETAMOL WITH CODEINE PHOSPHATE [Concomitant]
     Indication: PAIN
     Dosage: UNK
     Route: 048
     Dates: start: 20050212
  4. CETIRIZINE HCL [Concomitant]
     Dosage: UNK UNK, UNK
     Route: 048
     Dates: start: 20101230
  5. CIPROFLOXACIN [Concomitant]
     Indication: INFECTION
     Dosage: UNK
     Route: 048
     Dates: start: 20100504
  6. PRAMIPEXOLE DIHYDROCHLORIDE [Concomitant]
     Dosage: UNK UNK, UNK
     Route: 048
     Dates: start: 20091215
  7. CANDESARTAN CILEXETIL [Concomitant]
     Indication: HYPERTENSION
     Dosage: UNK UNK, UNK
     Route: 048
     Dates: start: 20070424
  8. IMODIUM [Concomitant]
     Indication: DIARRHOEA
     Dosage: UNK
     Route: 048
     Dates: start: 20110423
  9. PAROXETINE HCL [Concomitant]
     Indication: DEPRESSION
     Dosage: UNK
     Route: 048
     Dates: start: 20091217
  10. NEXIUM [Concomitant]
     Dosage: UNK
     Route: 048
     Dates: start: 20100408
  11. MAGMIN [Concomitant]
     Dosage: UNK UNK, UNK
     Route: 048
     Dates: start: 20110308
  12. OXYCODONE HCL [Concomitant]
     Indication: PAIN
     Dosage: UNK
     Route: 048
     Dates: start: 20081031
  13. FENTANYL [Concomitant]
     Indication: PAIN
     Dosage: UNK
     Route: 050
     Dates: start: 20101119
  14. QV [Concomitant]
     Indication: DRY SKIN
     Dosage: UNK
     Route: 061
     Dates: start: 20110308
  15. MAGNESIUM SULFATE [Concomitant]
     Dosage: UNK UNK, UNK
     Route: 042
     Dates: start: 20110406, end: 20110503
  16. AMITRIPTYLINE HCL [Concomitant]
     Indication: PAIN
     Dosage: UNK
     Route: 048
     Dates: start: 20100408
  17. AMOXICILLIN AND CLAVULANATE POTASSIUM [Concomitant]
     Indication: INFECTION
     Dosage: UNK
     Route: 048
     Dates: start: 20100504
  18. CLOTRIMAZOLE [Concomitant]
     Dosage: UNK UNK, UNK
     Route: 061
     Dates: start: 20101230

REACTIONS (1)
  - ATRIAL FIBRILLATION [None]
